FAERS Safety Report 14454800 (Version 3)
Quarter: 2018Q4

REPORT INFORMATION
  Report Type: Spontaneous
  Country: US (occurrence: US)
  Receive Date: 20180129
  Receipt Date: 20181127
  Transmission Date: 20190204
  Serious: Yes (Hospitalization)
  Sender: FDA-Public Use
  Company Number: US-DSJP-DSU-2017-141428

PATIENT

DRUGS (2)
  1. BENICAR HCT [Suspect]
     Active Substance: HYDROCHLOROTHIAZIDE\OLMESARTAN MEDOXOMIL
     Dosage: 20/12.5 MG, QD
     Route: 048
     Dates: start: 20140714
  2. BENICAR HCT [Suspect]
     Active Substance: HYDROCHLOROTHIAZIDE\OLMESARTAN MEDOXOMIL
     Indication: HYPERTENSION
     Dosage: 10/12.5MG, QD
     Dates: start: 20140714, end: 20170101

REACTIONS (3)
  - Sprue-like enteropathy [Recovering/Resolving]
  - Small intestinal obstruction [Unknown]
  - Incisional hernia [Unknown]

NARRATIVE: CASE EVENT DATE: 20140724
